FAERS Safety Report 13528243 (Version 1)
Quarter: 2017Q2

REPORT INFORMATION
  Report Type: Spontaneous
  Country: US (occurrence: US)
  Receive Date: 20170509
  Receipt Date: 20170509
  Transmission Date: 20170830
  Serious: No
  Sender: FDA-Public Use
  Company Number: US-BAYER-2017-083574

PATIENT
  Sex: Female

DRUGS (2)
  1. ALEVE [Suspect]
     Active Substance: NAPROXEN SODIUM
     Indication: PAIN
     Route: 048
     Dates: end: 2015
  2. ALEVE [Suspect]
     Active Substance: NAPROXEN SODIUM
     Indication: LICE INFESTATION
     Dosage: (2 IN THE MORNING AND 2 AT NIGHT.)
     Route: 048
     Dates: start: 2014, end: 20170502

REACTIONS (2)
  - Product physical issue [Unknown]
  - Patient dissatisfaction with treatment [Unknown]
